FAERS Safety Report 25081952 (Version 1)
Quarter: 2025Q1

REPORT INFORMATION
  Report Type: Spontaneous
  Country: US (occurrence: US)
  Receive Date: 20250317
  Receipt Date: 20250317
  Transmission Date: 20250409
  Serious: Yes (Other)
  Sender: AMGEN
  Company Number: US-AMGEN-USASP2025043386

PATIENT
  Age: 39 Year
  Sex: Female

DRUGS (7)
  1. INFLIXIMAB [Suspect]
     Active Substance: INFLIXIMAB
     Indication: Colitis ulcerative
     Route: 065
  2. USTEKINUMAB [Suspect]
     Active Substance: USTEKINUMAB
     Indication: Colitis ulcerative
     Route: 065
  3. SULFASALAZINE [Concomitant]
     Active Substance: SULFASALAZINE
     Route: 065
  4. MESALAMINE [Concomitant]
     Active Substance: MESALAMINE
     Route: 065
  5. AZATHIOPRINE [Concomitant]
     Active Substance: AZATHIOPRINE
     Route: 065
  6. VEDOLIZUMAB [Concomitant]
     Active Substance: VEDOLIZUMAB
     Route: 065
  7. MIRIKIZUMAB [Concomitant]
     Active Substance: MIRIKIZUMAB
     Route: 065

REACTIONS (7)
  - Gallbladder adenocarcinoma [Unknown]
  - Colitis [Unknown]
  - Adenocarcinoma of appendix [Unknown]
  - Ileal stenosis [Unknown]
  - Intra-abdominal calcification [Unknown]
  - Ascites [Unknown]
  - Therapy non-responder [Unknown]
